FAERS Safety Report 22047627 (Version 1)
Quarter: 2023Q1

REPORT INFORMATION
  Report Type: Spontaneous
  Country: CA (occurrence: CA)
  Receive Date: 20230301
  Receipt Date: 20230301
  Transmission Date: 20230418
  Serious: Yes (Disabling)
  Sender: FDA-Public Use
  Company Number: CA-002147023-NVSC2023CA041029

PATIENT
  Age: 70 Year
  Sex: Female
  Weight: 134.24 kg

DRUGS (6)
  1. TELMISARTAN [Suspect]
     Active Substance: TELMISARTAN
     Indication: Blood pressure management
     Dosage: 40 MG, QD
     Route: 048
  2. ALVESCO [Concomitant]
     Active Substance: CICLESONIDE
     Indication: Product used for unknown indication
     Dosage: UNK (AEROSOL; METERED DOSE)
     Route: 065
  3. CIPRALEX [Concomitant]
     Active Substance: ESCITALOPRAM OXALATE
     Indication: Product used for unknown indication
     Dosage: UNK
     Route: 065
  4. MOMETASONE FUROATE [Concomitant]
     Active Substance: MOMETASONE FUROATE
     Indication: Product used for unknown indication
     Dosage: UNK
     Route: 065
  5. FORMOTEROL FUMARATE [Concomitant]
     Active Substance: FORMOTEROL FUMARATE
     Indication: Product used for unknown indication
     Dosage: UNK (POWDER)
     Route: 065
  6. CROMOLYN SODIUM [Concomitant]
     Active Substance: CROMOLYN SODIUM
     Indication: Product used for unknown indication
     Dosage: UNK
     Route: 065

REACTIONS (2)
  - Headache [Recovered/Resolved]
  - Hypertension [Recovered/Resolved]
